APPROVED DRUG PRODUCT: RYALTRIS
Active Ingredient: MOMETASONE FUROATE; OLOPATADINE HYDROCHLORIDE
Strength: 0.025MG/SPRAY;0.665MG/SPRAY
Dosage Form/Route: SPRAY, METERED;NASAL
Application: N211746 | Product #001
Applicant: GLENMARK SPECIALTY SA
Approved: Jan 13, 2022 | RLD: Yes | RS: Yes | Type: RX

PATENTS:
Patent 10765686 | Expires: Sep 4, 2034
Patent 10758550 | Expires: Sep 4, 2034
Patent 10646500 | Expires: Sep 4, 2034
Patent 10548907 | Expires: Sep 4, 2034
Patent 11400101 | Expires: Sep 4, 2034
Patent 12064442 | Expires: Sep 4, 2034
Patent 10016443 | Expires: Sep 4, 2034
Patent 10517880 | Expires: Sep 4, 2034
Patent 9750754 | Expires: Sep 4, 2034
Patent 9078923 | Expires: Sep 4, 2034
Patent 11679210 | Expires: Sep 3, 2038
Patent 10561672 | Expires: Sep 4, 2034
Patent 9370483 | Expires: Sep 4, 2034
Patent 10376526 | Expires: Sep 4, 2034
Patent 12303635 | Expires: Apr 8, 2039
Patent 9937189 | Expires: Sep 4, 2034